FAERS Safety Report 16460280 (Version 3)
Quarter: 2019Q3

REPORT INFORMATION
  Report Type: Report from Study
  Country: US (occurrence: US)
  Receive Date: 20190620
  Receipt Date: 20190829
  Transmission Date: 20191004
  Serious: Yes (Other)
  Sender: FDA-Public Use
  Company Number: US-BRISTOL-MYERS SQUIBB COMPANY-BMS-2019-058794

PATIENT
  Age: 75 Year
  Sex: Female

DRUGS (25)
  1. NIVOLUMAB [Suspect]
     Active Substance: NIVOLUMAB
     Indication: RENAL CELL CARCINOMA
     Dosage: 360 MILLIGRAM, Q3WK
     Route: 042
     Dates: start: 20180814, end: 20190208
  2. ATORVASTATIN [Concomitant]
     Active Substance: ATORVASTATIN
     Indication: DYSLIPIDAEMIA
     Dosage: 20 MILLIGRAM, BID
     Route: 048
     Dates: start: 201401
  3. AMINO ACIDS NOS [Concomitant]
     Active Substance: AMINO ACIDS
     Indication: ROUTINE HEALTH MAINTENANCE
     Dosage: 2 TAB, QD
     Route: 048
     Dates: start: 2013
  4. IPILIMUMAB [Suspect]
     Active Substance: IPILIMUMAB
     Indication: RENAL CELL CARCINOMA
     Dosage: 1 MILLIGRAM/KILOGRAM, Q6WK
     Route: 042
     Dates: start: 20180814, end: 20190111
  5. COENZYME Q10 [Concomitant]
     Active Substance: UBIDECARENONE
     Indication: OSTEOPENIA
     Dosage: 30 MILLIGRAM, QD
     Route: 048
     Dates: start: 201401
  6. PANTOPRAZOLE [Concomitant]
     Active Substance: PANTOPRAZOLE
     Indication: GASTROOESOPHAGEAL REFLUX DISEASE
     Route: 065
  7. PREDNISONE. [Concomitant]
     Active Substance: PREDNISONE
     Indication: PNEUMONITIS
     Dosage: 60 MILLIGRAM, BID
     Route: 048
     Dates: start: 20190603
  8. NKTR-214 [Suspect]
     Active Substance: BEMPEGALDESLEUKIN
     Indication: RENAL CELL CARCINOMA
     Dosage: 0.006 MILLIGRAM/KILOGRAM, Q3WK
     Route: 042
     Dates: start: 20180814
  9. AMIODARONE [Suspect]
     Active Substance: AMIODARONE
     Indication: ATRIAL FIBRILLATION
     Dosage: 200 MILLIGRAM, BID
     Route: 048
     Dates: start: 20180909
  10. PHENERGAN [Concomitant]
     Active Substance: PROMETHAZINE HYDROCHLORIDE
     Indication: NAUSEA
     Dosage: 12.5 MILLIGRAM, Q6H
     Route: 065
     Dates: start: 20181001
  11. SYNTHROID [Concomitant]
     Active Substance: LEVOTHYROXINE SODIUM
     Indication: HYPOTHYROIDISM
     Dosage: 75 MICROGRAM, QD
     Route: 048
     Dates: start: 20190604
  12. PANTOPRAZOLE [Concomitant]
     Active Substance: PANTOPRAZOLE
     Indication: DYSPEPSIA
     Dosage: 40 MILLIGRAM, QD
     Route: 048
     Dates: start: 20190606
  13. ASTELIN [Concomitant]
     Active Substance: AZELASTINE HYDROCHLORIDE
     Indication: RHINITIS
     Dosage: 137 MICROGRAM, BID, AS  NEEDED
     Route: 065
  14. PRESERVISION AREDS [Concomitant]
     Active Substance: MINERALS\VITAMINS
     Indication: VITAMIN SUPPLEMENTATION
     Dosage: 1 TAB, QD
     Route: 048
     Dates: start: 2013
  15. TINACTIN [Concomitant]
     Active Substance: TOLNAFTATE
     Indication: ONYCHOMYCOSIS
     Dosage: 1 PERCENT, BID
     Route: 061
  16. ELIQUIS [Concomitant]
     Active Substance: APIXABAN
     Indication: ATRIAL FIBRILLATION
     Dosage: 5 MILLIGRAM, BID
     Route: 048
     Dates: start: 20180909
  17. FISH OIL OMEGA 3 [Concomitant]
     Active Substance: FISH OIL
     Indication: DYSLIPIDAEMIA
     Dosage: 1 DOSAGE FORM-300-1000MG, QD
     Route: 048
     Dates: start: 201401
  18. METOPROLOL XL SANDOZ [Concomitant]
     Active Substance: METOPROLOL SUCCINATE
     Indication: SUPRAVENTRICULAR TACHYCARDIA
     Dosage: 12.5 MILLIGRAM, QD
     Route: 048
     Dates: start: 2013
  19. ASTELIN [Concomitant]
     Active Substance: AZELASTINE HYDROCHLORIDE
     Indication: SEASONAL ALLERGY
     Dosage: 137 MICROGRAM, AS NEEDED
     Route: 045
     Dates: start: 1980
  20. THERAGRAN-M [MINERALS NOS;VITAMINS NOS] [Concomitant]
     Indication: ROUTINE HEALTH MAINTENANCE
     Dosage: 1 DOSAGE FORM, QD
     Route: 048
     Dates: start: 201507
  21. EYEVITE [Concomitant]
     Indication: ROUTINE HEALTH MAINTENANCE
     Dosage: 1 DOSAGE FORM, QD
     Route: 048
  22. KENALOG [Concomitant]
     Active Substance: TRIAMCINOLONE ACETONIDE
     Indication: DRY SKIN
     Dosage: 0.1 PERCENT, AS NEEDED
     Route: 061
     Dates: start: 20181212
  23. LIPITOR [Concomitant]
     Active Substance: ATORVASTATIN CALCIUM
     Indication: HEPATIC ENZYME INCREASED
     Dosage: 20 MILLIGRAM
     Route: 048
  24. VITAMIN D3 CALCIUM [Concomitant]
     Active Substance: CALCIUM\CHOLECALCIFEROL
     Indication: OSTEOPENIA
     Dosage: 600 MILLIGRAM, QD
     Route: 048
     Dates: start: 201401
  25. ZOFRAN [Concomitant]
     Active Substance: ONDANSETRON HYDROCHLORIDE
     Indication: NAUSEA
     Dosage: 4 MILLIGRAM, AS NEEDED
     Route: 048
     Dates: start: 201809

REACTIONS (1)
  - Papilloedema [Not Recovered/Not Resolved]

NARRATIVE: CASE EVENT DATE: 20190529
